FAERS Safety Report 6196609-8 (Version None)
Quarter: 2009Q2

REPORT INFORMATION
  Report Type: 
  Country: None (occurrence: None)
  Receive Date: 20090518
  Receipt Date: 20090508
  Transmission Date: 20091009
  Serious: Yes (Life-Threatening, Hospitalization)
  Sender: FDA-Public Use
  Company Number: 2009EU001932

PATIENT
  Sex: Female
  Weight: 100 kg

DRUGS (1)
  1. PROGRAF [Suspect]
     Indication: TRANSPLANT

REACTIONS (2)
  - COMA [None]
  - DEMYELINATION [None]
